FAERS Safety Report 20716706 (Version 1)
Quarter: 2022Q2

REPORT INFORMATION
  Report Type: Spontaneous
  Country: US (occurrence: US)
  Receive Date: 20220416
  Receipt Date: 20220416
  Transmission Date: 20220720
  Serious: No
  Sender: FDA-Public Use
  Company Number: US-HETERO-HET2022US00837

PATIENT
  Age: 56 Year
  Sex: Male

DRUGS (1)
  1. ESOMEPRAZOLE [Suspect]
     Active Substance: ESOMEPRAZOLE
     Indication: Gastrooesophageal reflux disease
     Dosage: 40 MG, BID
     Route: 065
     Dates: start: 20220405

REACTIONS (3)
  - Drug ineffective [Unknown]
  - Diarrhoea [Unknown]
  - Chest pain [Unknown]

NARRATIVE: CASE EVENT DATE: 20220405
